FAERS Safety Report 13954456 (Version 1)
Quarter: 2017Q3

REPORT INFORMATION
  Report Type: Spontaneous
  Country: US (occurrence: US)
  Receive Date: 20170909
  Receipt Date: 20170909
  Transmission Date: 20171128
  Serious: Yes (Disabling, Other)
  Sender: FDA-Public Use
  Company Number: None

PATIENT
  Age: 47 Year
  Sex: Male
  Weight: 56.25 kg

DRUGS (4)
  1. VITAMIN [Concomitant]
     Active Substance: VITAMINS
  2. LAMICTAL [Suspect]
     Active Substance: LAMOTRIGINE
  3. MAGNESIUM [Concomitant]
     Active Substance: MAGNESIUM
  4. VITAMIN B12 [Concomitant]
     Active Substance: CYANOCOBALAMIN

REACTIONS (9)
  - Suicidal ideation [None]
  - Crying [None]
  - Bipolar disorder [None]
  - Anger [None]
  - Rhinorrhoea [None]
  - Drug withdrawal syndrome [None]
  - Pruritus [None]
  - Irritability [None]
  - Insomnia [None]

NARRATIVE: CASE EVENT DATE: 20170730
